FAERS Safety Report 15369340 (Version 1)
Quarter: 2018Q3

REPORT INFORMATION
  Report Type: Report from Study
  Country: None (occurrence: US)
  Receive Date: 20180911
  Receipt Date: 20180911
  Transmission Date: 20181010
  Serious: Yes (Hospitalization)
  Sender: FDA-Public Use
  Company Number: US-ABBVIE-18K-163-2461125-00

PATIENT
  Age: 77 Year
  Sex: Female
  Weight: 95.34 kg

DRUGS (2)
  1. HUMIRA [Suspect]
     Active Substance: ADALIMUMAB
     Indication: RHEUMATOID ARTHRITIS
     Route: 058
     Dates: start: 2018, end: 201807
  2. HUMIRA [Suspect]
     Active Substance: ADALIMUMAB
     Route: 058
     Dates: start: 201808

REACTIONS (3)
  - Spondylitis [Unknown]
  - Hypertension [Recovering/Resolving]
  - Fall [Recovered/Resolved]

NARRATIVE: CASE EVENT DATE: 20180713
